FAERS Safety Report 8463720-8 (Version None)
Quarter: 2012Q2

REPORT INFORMATION
  Report Type: 
  Country: None (occurrence: None)
  Receive Date: 20120625
  Receipt Date: 20120614
  Transmission Date: 20120825
  Serious: Yes (Death)
  Sender: FDA-Public Use
  Company Number: CHPA2012US009034

PATIENT
  Sex: Female
  Weight: 21 kg

DRUGS (4)
  1. DELSYM [Suspect]
     Indication: INFLUENZA LIKE ILLNESS
     Dosage: 2.5 ML, UNK
     Route: 048
     Dates: start: 20120210
  2. DIPHENHYDRAMINE HCL [Suspect]
     Indication: COUGH
     Dosage: 1 DF, QHS
     Route: 048
     Dates: start: 20120208
  3. CETIRIZINE HCL [Suspect]
     Indication: INFLUENZA LIKE ILLNESS
     Dosage: UNK, UNK
     Route: 048
     Dates: start: 20120201, end: 20120201
  4. ACETAMINOPHEN [Suspect]
     Indication: PYREXIA
     Dosage: UNK
     Route: 048
     Dates: start: 20120209

REACTIONS (23)
  - PAIN IN EXTREMITY [None]
  - BLOOD CHLORIDE DECREASED [None]
  - BLOOD CREATININE DECREASED [None]
  - UNRESPONSIVE TO STIMULI [None]
  - TOXICITY TO VARIOUS AGENTS [None]
  - DISCOMFORT [None]
  - CRYING [None]
  - DRUG LEVEL INCREASED [None]
  - DRUG LEVEL ABOVE THERAPEUTIC [None]
  - INSOMNIA [None]
  - RESTLESSNESS [None]
  - BODY TEMPERATURE INCREASED [None]
  - LYMPHADENOPATHY [None]
  - BLOOD SODIUM DECREASED [None]
  - BLOOD GLUCOSE INCREASED [None]
  - PETECHIAE [None]
  - MUSCLE SPASMS [None]
  - MUSCLE SPASTICITY [None]
  - BLOOD POTASSIUM INCREASED [None]
  - BIOPSY LYMPH GLAND ABNORMAL [None]
  - PERIPHERAL COLDNESS [None]
  - ACCIDENTAL OVERDOSE [None]
  - DYSPNOEA [None]
